FAERS Safety Report 14319329 (Version 2)
Quarter: 2018Q1

REPORT INFORMATION
  Report Type: Spontaneous
  Country: LB (occurrence: LB)
  Receive Date: 20171222
  Receipt Date: 20180105
  Transmission Date: 20180509
  Serious: Yes (Hospitalization, Other)
  Sender: FDA-Public Use
  Company Number: LB-PFIZER INC-2017542603

PATIENT
  Age: 51 Year
  Sex: Male

DRUGS (2)
  1. ASCORBIC ACID. [Suspect]
     Active Substance: ASCORBIC ACID
     Dosage: 1 G, 1X/DAY, HIGH DOSE OF VITAMIN C
  2. IBUPROFEN. [Suspect]
     Active Substance: IBUPROFEN
     Indication: FLANK PAIN
     Dosage: UNK

REACTIONS (2)
  - Hyperoxaluria [Recovering/Resolving]
  - Nephropathy [Recovering/Resolving]
